FAERS Safety Report 4748898-1 (Version None)
Quarter: 2005Q3

REPORT INFORMATION
  Report Type: 
  Country: None (occurrence: None)
  Receive Date: 20050819
  Receipt Date: 20050527
  Transmission Date: 20060218
  Serious: Yes (Life-Threatening, Hospitalization, Other)
  Sender: FDA-Public Use
  Company Number: 2005UW08180

PATIENT
  Age: 48 Year
  Sex: Female
  Weight: 70.5 kg

DRUGS (10)
  1. SEROQUEL [Suspect]
     Indication: DEPRESSION
     Route: 048
     Dates: start: 19990101, end: 20050101
  2. SEROQUEL [Suspect]
     Route: 048
  3. PEG-INTRON [Suspect]
     Indication: HEPATITIS C
     Route: 058
     Dates: start: 20041230, end: 20050612
  4. REBETOL [Suspect]
     Indication: HEPATITIS C
     Route: 048
     Dates: start: 20041230, end: 20050612
  5. DILAUDID [Suspect]
  6. EFFEXOR XR [Concomitant]
     Indication: DEPRESSION
     Route: 048
  7. TRAZODONE HCL [Concomitant]
     Indication: DEPRESSION
     Route: 048
  8. ANALGESIC [Concomitant]
     Route: 048
  9. TOPAMAX [Concomitant]
     Indication: DEPRESSION
     Route: 048
  10. PREVACID [Concomitant]
     Indication: REFLUX OESOPHAGITIS
     Route: 048

REACTIONS (9)
  - ACCIDENTAL OVERDOSE [None]
  - DEHYDRATION [None]
  - DEPENDENCE [None]
  - DEPRESSION [None]
  - DRUG ABUSER [None]
  - FEELING ABNORMAL [None]
  - INTENTIONAL MISUSE [None]
  - LOSS OF CONSCIOUSNESS [None]
  - SELF MUTILATION [None]
